FAERS Safety Report 20578301 (Version 1)
Quarter: 2022Q1

REPORT INFORMATION
  Report Type: Spontaneous
  Country: US (occurrence: US)
  Receive Date: 20220310
  Receipt Date: 20220310
  Transmission Date: 20220423
  Serious: No
  Sender: FDA-Public Use
  Company Number: US-ORGANON-O2203USA000792

PATIENT
  Age: 18 Year
  Sex: Female
  Weight: 56.689 kg

DRUGS (1)
  1. NEXPLANON [Suspect]
     Active Substance: ETONOGESTREL
     Indication: Muscle spasms
     Dosage: 1 IMPLANT (1 IMPLANT FOR 3 YEARS)
     Route: 059
     Dates: start: 20220201

REACTIONS (3)
  - Heavy menstrual bleeding [Not Recovered/Not Resolved]
  - Menstrual disorder [Not Recovered/Not Resolved]
  - Product use in unapproved indication [Unknown]

NARRATIVE: CASE EVENT DATE: 20220201
